FAERS Safety Report 4533778-7 (Version None)
Quarter: 2004Q4

REPORT INFORMATION
  Report Type: 
  Country: None (occurrence: None)
  Receive Date: 20041206
  Receipt Date: 20041020
  Transmission Date: 20050328
  Serious: No
  Sender: FDA-Public Use
  Company Number: USA041081641

PATIENT
  Age: 80 Year
  Sex: Female

DRUGS (3)
  1. CYMBALTA [Suspect]
     Dosage: 30 MG
     Route: 048
     Dates: start: 20041019
  2. ANTIBIOTIC [Concomitant]
  3. XANAX              (ALPRAZOLAM DUM) [Concomitant]

REACTIONS (2)
  - ANXIETY [None]
  - INITIAL INSOMNIA [None]
